FAERS Safety Report 22169469 (Version 3)
Quarter: 2023Q2

REPORT INFORMATION
  Report Type: Spontaneous
  Country: JP (occurrence: JP)
  Receive Date: 20230404
  Receipt Date: 20230502
  Transmission Date: 20230722
  Serious: Yes (Other)
  Sender: FDA-Public Use
  Company Number: JP-JNJFOC-20230378641

PATIENT
  Sex: Male

DRUGS (2)
  1. RILPIVIRINE [Suspect]
     Active Substance: RILPIVIRINE
     Indication: HIV infection
     Dosage: GLUTEAL MUSCLE
     Route: 030
     Dates: start: 20230328
  2. VOCABRIA [Suspect]
     Active Substance: CABOTEGRAVIR SODIUM
     Indication: HIV infection
     Dosage: GLUTEAL MUSCLE
     Route: 030
     Dates: start: 20230328

REACTIONS (1)
  - Presyncope [Not Recovered/Not Resolved]

NARRATIVE: CASE EVENT DATE: 20230328
